FAERS Safety Report 22235982 (Version 1)
Quarter: 2023Q2

REPORT INFORMATION
  Report Type: Report from Study
  Country: US (occurrence: US)
  Receive Date: 20230420
  Receipt Date: 20230420
  Transmission Date: 20230721
  Serious: Yes (Other)
  Sender: FDA-Public Use
  Company Number: US-ABBVIE-4734406

PATIENT
  Sex: Female

DRUGS (1)
  1. LUPRON [Suspect]
     Active Substance: LEUPROLIDE ACETATE
     Indication: Endometriosis
     Route: 065

REACTIONS (7)
  - Leukaemia [Unknown]
  - Hyperhidrosis [Unknown]
  - Adenoma benign [Unknown]
  - Hypocalcaemia [Unknown]
  - Hyperparathyroidism [Unknown]
  - Nephrolithiasis [Unknown]
  - Menopause [Unknown]
